FAERS Safety Report 23393276 (Version 1)
Quarter: 2024Q1

REPORT INFORMATION
  Report Type: Spontaneous
  Country: US (occurrence: None)
  Receive Date: 20240111
  Receipt Date: 20240111
  Transmission Date: 20240410
  Serious: No
  Sender: FDA-Public Use
  Company Number: None

PATIENT
  Sex: Female

DRUGS (1)
  1. TALTZ [Suspect]
     Active Substance: IXEKIZUMAB
     Indication: Psoriasis
     Dosage: 80MG/ML EVERY 4 WEEKS UNDER THE SKIN
     Route: 058
     Dates: start: 202105

REACTIONS (7)
  - Pruritus [None]
  - Burning sensation [None]
  - Pain [None]
  - Arthralgia [None]
  - Arthralgia [None]
  - Pain in extremity [None]
  - Drug ineffective [None]
